FAERS Safety Report 9583602 (Version 1)
Quarter: 2013Q4

REPORT INFORMATION
  Report Type: Spontaneous
  Country: US (occurrence: US)
  Receive Date: 20131002
  Receipt Date: 20131002
  Transmission Date: 20140711
  Serious: No
  Sender: FDA-Public Use
  Company Number: US-AMGEN-USASP2013048310

PATIENT
  Age: 39 Year
  Sex: Male
  Weight: 90.7 kg

DRUGS (8)
  1. ENBREL [Suspect]
     Indication: PRODUCT USED FOR UNKNOWN INDICATION
     Dosage: 50 MG, QWK
     Route: 058
  2. PRISTIQ [Concomitant]
     Dosage: 50 MG, UNK
  3. NABUMETONE [Concomitant]
     Dosage: 500 MG, UNK
  4. LODRANE 24 [Concomitant]
     Dosage: 24, UNK
  5. PROMETHAZINE [Concomitant]
     Dosage: 12.5 MG, UNK
  6. PRILOSEC                           /00661201/ [Concomitant]
     Dosage: 10 MG, UNK
  7. CYCLOBENZAPRINE [Concomitant]
     Dosage: 5 MG, UNK
  8. BUTRANS                            /00444001/ [Concomitant]
     Dosage: 10 MCG, PER HOUR

REACTIONS (1)
  - Therapeutic response decreased [Unknown]
